FAERS Safety Report 25002926 (Version 1)
Quarter: 2025Q1

REPORT INFORMATION
  Report Type: Spontaneous
  Country: KR (occurrence: KR)
  Receive Date: 20250224
  Receipt Date: 20250224
  Transmission Date: 20250409
  Serious: Yes (Life-Threatening)
  Sender: ASTELLAS
  Company Number: KR-GILEAD-2025-0704699

PATIENT
  Sex: Female

DRUGS (1)
  1. AMBISOME [Suspect]
     Active Substance: AMPHOTERICIN B
     Indication: Acute myeloid leukaemia
     Dosage: 70 MG, QD
     Route: 065
     Dates: start: 20220310, end: 20220315

REACTIONS (1)
  - Electrolyte imbalance [Recovering/Resolving]

NARRATIVE: CASE EVENT DATE: 20220311
